FAERS Safety Report 7018745-6 (Version None)
Quarter: 2010Q3

REPORT INFORMATION
  Report Type: 
  Country: None (occurrence: None)
  Receive Date: 20100928
  Receipt Date: 20100921
  Transmission Date: 20110219
  Serious: Yes (Hospitalization)
  Sender: FDA-Public Use
  Company Number: JP-BRISTOL-MYERS SQUIBB COMPANY-15296007

PATIENT
  Age: 23 Year
  Sex: Female

DRUGS (5)
  1. ABILIFY [Suspect]
     Indication: SCHIZOPHRENIA
     Route: 048
  2. CLOZAPINE [Suspect]
     Dosage: STARTED AS 12.5MG AND INCREASED TO 600MG DAILY RECEIVED FOR 12WK
     Route: 048
     Dates: start: 20100304
  3. RISPERIDONE [Concomitant]
  4. QUETIAPINE FUMARATE [Concomitant]
  5. BLONANSERIN [Concomitant]

REACTIONS (9)
  - AGITATION [None]
  - DELUSION [None]
  - HALLUCINATION [None]
  - HEPATIC FUNCTION ABNORMAL [None]
  - PYREXIA [None]
  - SALIVARY HYPERSECRETION [None]
  - SUICIDAL IDEATION [None]
  - SUICIDE ATTEMPT [None]
  - TREMOR [None]
